FAERS Safety Report 18498069 (Version 1)
Quarter: 2020Q4

REPORT INFORMATION
  Report Type: Spontaneous
  Country: CN (occurrence: CN)
  Receive Date: 20201112
  Receipt Date: 20201112
  Transmission Date: 20210114
  Serious: Yes (Other)
  Sender: FDA-Public Use
  Company Number: CN-PFIZER INC-2020445587

PATIENT
  Age: 2 Year
  Sex: Male
  Weight: 12.5 kg

DRUGS (1)
  1. SOLU-MEDROL [Suspect]
     Active Substance: METHYLPREDNISOLONE SODIUM SUCCINATE
     Indication: EPILEPSY
     Dosage: 10 MG/KG, 1X/DAY
     Route: 041
     Dates: start: 20201026, end: 20201026

REACTIONS (4)
  - Rash [Recovering/Resolving]
  - Pruritus [Recovering/Resolving]
  - Off label use [Unknown]
  - Product use in unapproved indication [Unknown]

NARRATIVE: CASE EVENT DATE: 20201026
